FAERS Safety Report 7845144-7 (Version None)
Quarter: 2011Q4

REPORT INFORMATION
  Report Type: 
  Country: None (occurrence: None)
  Receive Date: 20111025
  Receipt Date: 20111021
  Transmission Date: 20120403
  Serious: Yes (Death)
  Sender: FDA-Public Use
  Company Number: TN-SANOFI-AVENTIS-2011SA069909

PATIENT
  Age: 66 Year
  Sex: Male

DRUGS (8)
  1. INSULATARD NPH HUMAN [Concomitant]
     Route: 048
     Dates: end: 20111006
  2. PLAVIX [Suspect]
     Route: 048
     Dates: start: 20110825, end: 20111006
  3. METHYLDOPA [Concomitant]
     Route: 048
     Dates: end: 20111006
  4. PLAVIX [Suspect]
     Route: 048
     Dates: start: 20110825, end: 20111006
  5. ASPEGIC 325 [Concomitant]
     Route: 048
     Dates: end: 20111006
  6. FAMOTIDINE [Concomitant]
     Route: 048
     Dates: end: 20111006
  7. LASIX [Concomitant]
     Route: 048
     Dates: end: 20111006
  8. SIMVASTATIN [Concomitant]
     Route: 048
     Dates: end: 20111006

REACTIONS (1)
  - HYPOGLYCAEMIC COMA [None]
